FAERS Safety Report 4567654-0 (Version None)
Quarter: 2005Q1

REPORT INFORMATION
  Report Type: 
  Country: None (occurrence: None)
  Receive Date: 20050110
  Receipt Date: 20050110
  Transmission Date: 20050727
  Serious: Yes (Life-Threatening, Hospitalization)
  Sender: FDA-Public Use
  Company Number: None

PATIENT
  Age: 38 Year
  Sex: Male
  Weight: 136.0791 kg

DRUGS (1)
  1. PHENYTOIN [Suspect]
     Indication: CONVULSION
     Dosage: 100 MG ONE BID , TWO HS

REACTIONS (3)
  - CONVULSION [None]
  - DRUG LEVEL DECREASED [None]
  - PHARMACEUTICAL PRODUCT COMPLAINT [None]
